FAERS Safety Report 7252831-0 (Version None)
Quarter: 2011Q1

REPORT INFORMATION
  Report Type: 
  Country: None (occurrence: None)
  Receive Date: 20110129
  Receipt Date: 20100405
  Transmission Date: 20110831
  Serious: No
  Sender: FDA-Public Use
  Company Number: US-ABBOTT-10P-163-0632517-00

PATIENT
  Sex: Female
  Weight: 58.112 kg

DRUGS (3)
  1. HUMIRA [Suspect]
     Indication: PSORIASIS
     Dates: start: 20100304
  2. OXYCONTIN [Concomitant]
     Indication: PAIN
  3. ANTIBIOTICS [Concomitant]
     Indication: LOCALISED INFECTION

REACTIONS (2)
  - CHILLS [None]
  - SKIN ULCER HAEMORRHAGE [None]
